FAERS Safety Report 4850200-1 (Version None)
Quarter: 2005Q4

REPORT INFORMATION
  Report Type: 
  Country: None (occurrence: None)
  Receive Date: 20051123
  Receipt Date: 20050929
  Transmission Date: 20060501
  Serious: No
  Sender: FDA-Public Use
  Company Number: 218181

PATIENT
  Age: 67 Year
  Sex: Male
  Weight: 86.6 kg

DRUGS (1)
  1. RAPTIVA [Suspect]
     Indication: PSORIASIS
     Dosage: 0.9 ML, 1/WEEK, UNK
     Route: 065
     Dates: start: 20040223, end: 20050920

REACTIONS (1)
  - HERPES ZOSTER [None]
